FAERS Safety Report 6896922-2 (Version None)
Quarter: 2010Q3

REPORT INFORMATION
  Report Type: 
  Country: None (occurrence: None)
  Receive Date: 20100802
  Receipt Date: 20070213
  Transmission Date: 20110219
  Serious: No
  Sender: FDA-Public Use
  Company Number: US-PFIZER INC-2007012758

PATIENT
  Sex: Female
  Weight: 62.1 kg

DRUGS (6)
  1. LYRICA [Suspect]
     Indication: HYPOAESTHESIA
     Dates: start: 20070201
  2. XANAX [Concomitant]
  3. TRICOR [Concomitant]
  4. PREVACID [Concomitant]
  5. LIPITOR [Concomitant]
  6. DRUG, UNSPECIFIED [Concomitant]

REACTIONS (2)
  - DIZZINESS [None]
  - ERYTHEMA [None]
